FAERS Safety Report 8069699-5 (Version None)
Quarter: 2012Q1

REPORT INFORMATION
  Report Type: 
  Country: None (occurrence: None)
  Receive Date: 20120119
  Receipt Date: 20120110
  Transmission Date: 20120608
  Serious: Yes (Other)
  Sender: FDA-Public Use
  Company Number: AUR-APL-2012-00197

PATIENT
  Weight: 136.0791 kg

DRUGS (8)
  1. SYNTHYROID (LEVOTHYROXINE SODIUM) [Concomitant]
  2. DIOVAN [Concomitant]
  3. METFORMIN HCL [Suspect]
     Indication: DIABETES MELLITUS
     Dosage: 2000 MG (1000 MG,2 IN 1 D),ORAL
     Route: 048
     Dates: start: 20120102, end: 20120103
  4. HYDROCHLOROTHIAZIDE [Concomitant]
  5. CLARINEX [Concomitant]
  6. CRESTOR [Concomitant]
  7. SINGULAIR [Concomitant]
  8. NASONEX (MOMETASTONE FUROATE) [Concomitant]

REACTIONS (8)
  - CEREBROVASCULAR ACCIDENT [None]
  - APPARENT DEATH [None]
  - HEADACHE [None]
  - FEELING ABNORMAL [None]
  - RESTLESSNESS [None]
  - PAIN [None]
  - MULTI-ORGAN DISORDER [None]
  - PRODUCT QUALITY ISSUE [None]
